FAERS Safety Report 10221439 (Version 1)
Quarter: 2014Q2

REPORT INFORMATION
  Report Type: Spontaneous
  Country: NO (occurrence: NO)
  Receive Date: 20140606
  Receipt Date: 20140606
  Transmission Date: 20141212
  Serious: Yes (Hospitalization, Disabling)
  Sender: FDA-Public Use
  Company Number: NO-JNJFOC-20140600968

PATIENT
  Age: 80 Year
  Sex: Male

DRUGS (4)
  1. XARELTO [Suspect]
     Indication: CEREBROVASCULAR ACCIDENT PROPHYLAXIS
     Route: 048
     Dates: end: 20140509
  2. XARELTO [Suspect]
     Indication: ATRIAL FIBRILLATION
     Route: 048
     Dates: end: 20140509
  3. TRIATEC [Concomitant]
     Route: 048
  4. KOLKICIN [Concomitant]
     Indication: GOUT
     Route: 048

REACTIONS (2)
  - Cerebral infarction [Recovering/Resolving]
  - Drug ineffective [Recovering/Resolving]
